FAERS Safety Report 10415750 (Version 1)
Quarter: 2014Q2

REPORT INFORMATION
  Report Type: Spontaneous
  Country: US (occurrence: None)
  Receive Date: 20140604
  Receipt Date: 20140604
  Transmission Date: 20141212
  Serious: No
  Sender: FDA-Public Use
  Company Number: 163-POMAL-13122047

PATIENT
  Age: 66 Year
  Sex: Female
  Weight: 55.79 kg

DRUGS (20)
  1. POMALYST (POMALIDOMIDE) (4 MILLIGRAM, CAPSULES) [Suspect]
     Indication: PLASMA CELL MYELOMA
     Route: 048
     Dates: start: 20130319
  2. MULTIVITAMINS [Concomitant]
  3. SENNA MAXIMUM STRENGTH [Concomitant]
  4. PREMARIN (ESTROGENS CONJUGATED) [Concomitant]
  5. FENTANYL [Concomitant]
  6. COLACE (DOCUSATE SODIUM) [Concomitant]
  7. CALTRATE 600 + D (LEKOVIT CA) [Concomitant]
  8. ASPIRIN (ACETYLSALICYLIC ACID) [Concomitant]
  9. MELPHALAN HYDROCHLORIDE) [Concomitant]
  10. AVITA (TRETINOIN) [Concomitant]
  11. LIPITOR (ATORVASTATIN) [Concomitant]
  12. ZETIA (EZETIMIBE) [Concomitant]
  13. ZOLOFT (SERTRALINE HYDROCHLORIDE) [Concomitant]
  14. DECADRON (DEXAMETHASONE) [Concomitant]
  15. VALIUM (DIAZEPAM) [Concomitant]
  16. ZOMETA (ZOLEDRONIC ACID) [Concomitant]
  17. ZOFRAN (ONDANSETRON HYDROCHLORIDE) [Concomitant]
  18. VALTREX (VALACICLOVIR HYDROCHLORIDE) [Concomitant]
  19. LOSARTAN POTASSIUM [Concomitant]
  20. DILTIAZEM HCL [Concomitant]

REACTIONS (3)
  - Oral candidiasis [None]
  - Diarrhoea [None]
  - Nausea [None]
